FAERS Safety Report 7825064-4 (Version None)
Quarter: 2011Q4

REPORT INFORMATION
  Report Type: 
  Country: None (occurrence: None)
  Receive Date: 20111019
  Receipt Date: 20110914
  Transmission Date: 20120403
  Serious: No
  Sender: FDA-Public Use
  Company Number: US-BRISTOL-MYERS SQUIBB COMPANY-15755366

PATIENT
  Age: 74 Year
  Sex: Female

DRUGS (6)
  1. LIPITOR [Concomitant]
  2. BUPROPION HCL [Concomitant]
     Dosage: BUPROPION XL
  3. SYNTHROID [Concomitant]
  4. AVALIDE [Suspect]
     Indication: HYPERTENSION
     Dosage: THERAPY FROM 6 YEARS NEW 30 TABLETS FROM 02MAY2011
  5. CHLORDIAZEPOXIDE [Concomitant]
     Dosage: EVERY SIX HOURS
  6. ACTONEL [Concomitant]
     Dosage: 1DF-150(UNITS NOT SP)

REACTIONS (1)
  - DRUG INEFFECTIVE [None]
